FAERS Safety Report 7119373-4 (Version None)
Quarter: 2010Q4

REPORT INFORMATION
  Report Type: 
  Country: None (occurrence: None)
  Receive Date: 20101123
  Receipt Date: 20101116
  Transmission Date: 20110411
  Serious: Yes (Hospitalization)
  Sender: FDA-Public Use
  Company Number: BR-US-EMD SERONO, INC.-7028079

PATIENT
  Sex: Female

DRUGS (5)
  1. REBIF [Suspect]
     Indication: RELAPSING-REMITTING MULTIPLE SCLEROSIS
     Dates: start: 20100929, end: 20101108
  2. EUTHYROX [Concomitant]
     Indication: HYPOTHYROIDISM
  3. HYGROTON [Concomitant]
  4. FLUOXETINE [Concomitant]
  5. OMEGA 3 FISH OIL CAPSULES [Concomitant]

REACTIONS (6)
  - BALANCE DISORDER [None]
  - HEADACHE [None]
  - MUSCLE RIGIDITY [None]
  - MUSCULAR WEAKNESS [None]
  - PAIN [None]
  - PARAESTHESIA [None]
